FAERS Safety Report 7370156-X (Version None)
Quarter: 2011Q1

REPORT INFORMATION
  Report Type: 
  Country: None (occurrence: None)
  Receive Date: 20110323
  Receipt Date: 20100830
  Transmission Date: 20110831
  Serious: No
  Sender: FDA-Public Use
  Company Number: US-ASTRAZENECA-2010SE38449

PATIENT
  Age: 80 Year
  Sex: Male

DRUGS (1)
  1. ZESTRIL [Suspect]
     Route: 048

REACTIONS (2)
  - EOSINOPHILIC PNEUMONIA [None]
  - ADVERSE DRUG REACTION [None]
